FAERS Safety Report 8833203 (Version 3)
Quarter: 2012Q4

REPORT INFORMATION
  Report Type: 
  Country: JP (occurrence: JP)
  Receive Date: 20121010
  Receipt Date: 20121227
  Transmission Date: 20130627
  Serious: Yes (Hospitalization)
  Sender: FDA-Public Use
  Company Number: JP-009507513-1210JPN002657

PATIENT
  Age: 62 Year
  Sex: Female
  Weight: 49 kg

DRUGS (5)
  1. JANUVIA TABLETS 50MG [Suspect]
     Indication: DIABETES MELLITUS
     Dosage: 50 mg, qd
     Route: 048
     Dates: start: 20110113, end: 20120913
  2. AMARYL [Suspect]
     Indication: DIABETES MELLITUS
     Dosage: 3 mg, bid
     Route: 048
     Dates: start: 20100303, end: 201210
  3. MELBIN [Concomitant]
     Indication: DIABETES MELLITUS
     Dosage: Daily dosage unknown
     Route: 048
  4. METGLUCO [Suspect]
     Indication: DIABETES MELLITUS
     Dosage: 250 mg, bid
     Route: 048
     Dates: start: 20101011, end: 201210
  5. BAYASPIRIN [Suspect]
     Indication: PLATELET AGGREGATION INHIBITION
     Dosage: 100 mg, qd
     Route: 048
     Dates: start: 20100811, end: 201210

REACTIONS (1)
  - Bile duct cancer [Not Recovered/Not Resolved]
